FAERS Safety Report 4520400-9 (Version None)
Quarter: 2004Q4

REPORT INFORMATION
  Report Type: 
  Country: None (occurrence: None)
  Receive Date: 20041203
  Receipt Date: 20041112
  Transmission Date: 20050328
  Serious: Yes (Other)
  Sender: FDA-Public Use
  Company Number: 2004095318

PATIENT
  Age: 78 Year
  Sex: Female

DRUGS (1)
  1. BEXTRA [Suspect]
     Indication: PAIN
     Dosage: 10 MG (10 MG), ORAL
     Route: 048
     Dates: start: 20041028, end: 20041028

REACTIONS (3)
  - LIP DRY [None]
  - PRURITUS [None]
  - RASH [None]
